FAERS Safety Report 7194428-7 (Version None)
Quarter: 2010Q4

REPORT INFORMATION
  Report Type: 
  Country: None (occurrence: None)
  Receive Date: 20101223
  Receipt Date: 20101213
  Transmission Date: 20110411
  Serious: Yes (Other)
  Sender: FDA-Public Use
  Company Number: NL-AMGEN-NLDSP2010010514

PATIENT

DRUGS (6)
  1. ENBREL [Suspect]
     Indication: PSORIATIC ARTHROPATHY
     Dosage: 50 MG, WEEKLY
     Dates: start: 20101018
  2. METHOTREXATE [Concomitant]
  3. FOLIC ACID [Concomitant]
  4. PRILOSEC [Concomitant]
  5. ARCOXIA [Concomitant]
  6. HYDROCHLOROTHIAZDE TAB [Concomitant]

REACTIONS (2)
  - DRUG INEFFECTIVE [None]
  - OPEN WOUND [None]
